FAERS Safety Report 7949823-2 (Version None)
Quarter: 2011Q4

REPORT INFORMATION
  Report Type: 
  Country: None (occurrence: None)
  Receive Date: 20111130
  Receipt Date: 20111124
  Transmission Date: 20120403
  Serious: Yes (Hospitalization)
  Sender: FDA-Public Use
  Company Number: IE-PFIZER INC-2011284246

PATIENT
  Age: 48 Year
  Sex: Male

DRUGS (6)
  1. FUSIDIC ACID [Interacting]
     Indication: ANTIBIOTIC RESISTANT STAPHYLOCOCCUS TEST POSITIVE
     Dosage: 500 MG, 3X/DAY
  2. ATORVASTATIN CALCIUM [Suspect]
     Dosage: 40 MG, DAILY
  3. FUSIDIC ACID [Interacting]
     Indication: ARTHROSCOPY
  4. ASPIRIN [Concomitant]
     Dosage: 75 MG, 1X/DAY
  5. LINEZOLID [Concomitant]
     Indication: ANTIBIOTIC RESISTANT STAPHYLOCOCCUS TEST POSITIVE
     Dosage: 600 MG, 2X/DAY
  6. LINEZOLID [Concomitant]
     Indication: ARTHROSCOPY

REACTIONS (3)
  - DRUG INTERACTION [None]
  - RHABDOMYOLYSIS [None]
  - HEPATITIS ACUTE [None]
